FAERS Safety Report 15410483 (Version 3)
Quarter: 2018Q4

REPORT INFORMATION
  Report Type: Spontaneous
  Country: DE (occurrence: DE)
  Receive Date: 20180921
  Receipt Date: 20181002
  Transmission Date: 20190204
  Serious: Yes (Hospitalization)
  Sender: FDA-Public Use
  Company Number: DE-JNJFOC-20180832215

PATIENT
  Age: 70 Year
  Sex: Female

DRUGS (4)
  1. REGAINE FRAUEN SCHAUM [Suspect]
     Active Substance: MINOXIDIL
     Indication: ALOPECIA
     Dosage: HALF A CAP A DAY (ALSO REPORTED AS ONE GRAM IN THE EVENING)
     Route: 061
     Dates: start: 20180626, end: 20180801
  2. DEKRISTOL [Concomitant]
     Active Substance: CHOLECALCIFEROL
     Indication: PRODUCT USED FOR UNKNOWN INDICATION
     Dosage: EVERY 3 WEEKS
     Route: 065
  3. ALENDRON [Concomitant]
     Active Substance: ALENDRONATE SODIUM
     Indication: PRODUCT USED FOR UNKNOWN INDICATION
     Route: 065
  4. REGAINE FRAUEN SCHAUM [Suspect]
     Active Substance: MINOXIDIL
     Route: 061

REACTIONS (7)
  - Cardiac arrest [Recovered/Resolved]
  - Application site pain [Recovered/Resolved]
  - Venous occlusion [Recovered/Resolved]
  - Alopecia [Recovered/Resolved]
  - Contraindicated product administered [Unknown]
  - Myocardial infarction [Recovered/Resolved]
  - Hypertension [Recovered/Resolved]

NARRATIVE: CASE EVENT DATE: 2018
